FAERS Safety Report 8611528-2 (Version None)
Quarter: 2012Q3

REPORT INFORMATION
  Report Type: 
  Country: None (occurrence: None)
  Receive Date: 20120809
  Receipt Date: 20120725
  Transmission Date: 20120928
  Serious: Yes (Death, Other)
  Sender: FDA-Public Use
  Company Number: 2012MA009143

PATIENT
  Age: 19 Year
  Sex: Male

DRUGS (3)
  1. HEROIN [Suspect]
     Indication: INTENTIONAL DRUG MISUSE
  2. KADIAN [Suspect]
     Indication: INTENTIONAL DRUG MISUSE
  3. CODEINE SULFATE [Suspect]
     Indication: INTENTIONAL DRUG MISUSE

REACTIONS (9)
  - UNRESPONSIVE TO STIMULI [None]
  - VENTRICULAR FIBRILLATION [None]
  - PULSELESS ELECTRICAL ACTIVITY [None]
  - TOXICITY TO VARIOUS AGENTS [None]
  - PUPIL FIXED [None]
  - PULSE ABSENT [None]
  - BLOOD POTASSIUM INCREASED [None]
  - FOAMING AT MOUTH [None]
  - APNOEA [None]
